FAERS Safety Report 10435380 (Version 1)
Quarter: 2014Q3

REPORT INFORMATION
  Report Type: Spontaneous
  Country: US (occurrence: None)
  Receive Date: 20140904
  Receipt Date: 20140904
  Transmission Date: 20150326
  Serious: Yes (Hospitalization)
  Sender: FDA-Public Use
  Company Number: None

PATIENT
  Age: 84 Year
  Sex: Female
  Weight: 39 kg

DRUGS (4)
  1. K-DUR [Concomitant]
     Active Substance: POTASSIUM CHLORIDE
  2. OLMESARTAN [Suspect]
     Active Substance: OLMESARTAN
     Indication: HYPERTENSION
     Dosage: 1 TABLET, QD, ORAL
     Route: 048
     Dates: start: 20120601, end: 20140815
  3. LUMIGAN [Concomitant]
     Active Substance: BIMATOPROST
  4. BENICAR [Concomitant]
     Active Substance: OLMESARTAN MEDOXOMIL

REACTIONS (9)
  - Enteritis [None]
  - Electrocardiogram PR prolongation [None]
  - Hypokalaemia [None]
  - Dyspnoea [None]
  - Electrocardiogram U-wave abnormality [None]
  - C-reactive protein increased [None]
  - Tropical sprue [None]
  - Duodenitis [None]
  - Diarrhoea [None]

NARRATIVE: CASE EVENT DATE: 20140815
